FAERS Safety Report 20121377 (Version 1)
Quarter: 2021Q4

REPORT INFORMATION
  Report Type: Report from Study
  Country: US (occurrence: US)
  Receive Date: 20211127
  Receipt Date: 20211127
  Transmission Date: 20220303
  Serious: Yes (Other)
  Sender: FDA-Public Use
  Company Number: US-TAKEDA-2021TUS075348

PATIENT
  Age: 54 Year
  Sex: Female

DRUGS (1)
  1. VORTIOXETINE [Suspect]
     Active Substance: VORTIOXETINE
     Indication: Product used for unknown indication
     Dosage: UNK
     Route: 065
     Dates: start: 20191213, end: 20211101

REACTIONS (8)
  - Suicidal ideation [Unknown]
  - Withdrawal syndrome [Unknown]
  - Frustration tolerance decreased [Unknown]
  - Irritability [Unknown]
  - Depression [Unknown]
  - Headache [Unknown]
  - Nausea [Unknown]
  - Vomiting [Unknown]

NARRATIVE: CASE EVENT DATE: 20211124
